FAERS Safety Report 5332840-9 (Version None)
Quarter: 2007Q2

REPORT INFORMATION
  Report Type: 
  Country: None (occurrence: None)
  Receive Date: 20070521
  Receipt Date: 20070305
  Transmission Date: 20071010
  Serious: Yes (Death, Hospitalization)
  Sender: FDA-Public Use
  Company Number: 2007000217

PATIENT
  Age: 76 Year
  Sex: Male

DRUGS (5)
  1. ERLOTINIB  (TABLET) [Suspect]
     Indication: NON-SMALL CELL LUNG CANCER
     Dosage: 100 MG (QD), ORAL
     Route: 048
     Dates: start: 20061102, end: 20070121
  2. CISPLATIN [Suspect]
     Indication: NON-SMALL CELL LUNG CANCER
     Dosage: 50MG/M^2, INTRAVENOUS
     Route: 042
     Dates: start: 20070105, end: 20070121
  3. GEMZAR [Suspect]
     Indication: NON-SMALL CELL LUNG CANCER
     Dosage: 1250 MG/M^2, INTRAVENOUS
     Route: 042
     Dates: start: 20070105, end: 20070121
  4. BISOPROLOL FUMARATE [Concomitant]
  5. L-THYROXIN (LEVOTHYROXINE) [Concomitant]

REACTIONS (3)
  - INFECTION [None]
  - MYOCARDIAL INFARCTION [None]
  - PNEUMONIA [None]
